FAERS Safety Report 6067496-3 (Version None)
Quarter: 2009Q1

REPORT INFORMATION
  Report Type: 
  Country: None (occurrence: None)
  Receive Date: 20090205
  Receipt Date: 20090127
  Transmission Date: 20090719
  Serious: Yes (Other)
  Sender: FDA-Public Use
  Company Number: BR-ELI_LILLY_AND_COMPANY-BR200901004772

PATIENT
  Sex: Female
  Weight: 106 kg

DRUGS (4)
  1. ZYPREXA [Suspect]
     Indication: BIPOLAR DISORDER
     Dosage: 10 MG, 2/D
     Route: 048
     Dates: start: 20081209
  2. BROMAZEPAM [Concomitant]
     Dosage: 3 MG, 3/D
     Route: 048
  3. TRILEPTAL [Concomitant]
     Dosage: 600 MG, DAILY (1/D)
     Route: 048
  4. FENERGAN [Concomitant]
     Dosage: 25 MG, 2/D
     Route: 048

REACTIONS (1)
  - PITUITARY TUMOUR [None]
